FAERS Safety Report 22874049 (Version 6)
Quarter: 2025Q4

REPORT INFORMATION
  Report Type: Spontaneous
  Country: EU (occurrence: EU)
  Receive Date: 20230828
  Receipt Date: 20251028
  Transmission Date: 20260118
  Serious: Yes (Death, Other)
  Sender: TAKEDA
  Company Number: EU-INDIVIOR LIMITED-INDV-102003-2017

PATIENT
  Age: 26 Year
  Sex: Male

DRUGS (20)
  1. METHYLPHENIDATE HYDROCHLORIDE [Interacting]
     Active Substance: METHYLPHENIDATE HYDROCHLORIDE
     Indication: Product used for unknown indication
     Dosage: 0.004 MICROGRAM/GRAM
  2. CARBAMAZEPINE [Interacting]
     Active Substance: CARBAMAZEPINE
     Indication: Overdose
     Dosage: 14 MICROGRAM/GRAM
  3. CARBAMAZEPINE [Interacting]
     Active Substance: CARBAMAZEPINE
     Indication: Product used for unknown indication
  4. HERBALS\TETRAHYDROCANNABINOL UNSPECIFIED [Interacting]
     Active Substance: HERBALS\TETRAHYDROCANNABINOL UNSPECIFIED
     Indication: Product used for unknown indication
     Dosage: UNK
  5. FENTANYL [Interacting]
     Active Substance: FENTANYL
     Indication: Product used for unknown indication
     Dosage: 0.00038 MICROGRAM/GRAM
  6. GABAPENTIN [Interacting]
     Active Substance: GABAPENTIN
     Indication: Product used for unknown indication
     Dosage: 90 MICROGRAM/GRAM
  7. METHYLPHENIDATE ACID [Suspect]
     Active Substance: METHYLPHENIDATE ACID
     Indication: Product used for unknown indication
     Dosage: UNK
  8. DIAZEPAM [Interacting]
     Active Substance: DIAZEPAM
     Indication: Product used for unknown indication
     Dosage: 0.03 MICROGRAM/GRAM
  9. PREGABALIN [Interacting]
     Active Substance: PREGABALIN
     Indication: Overdose
     Dosage: 27 MICROGRAM/GRAM
  10. ALPRAZOLAM [Interacting]
     Active Substance: ALPRAZOLAM
     Indication: Product used for unknown indication
     Dosage: UNK
  11. BUPRENORPHINE [Interacting]
     Active Substance: BUPRENORPHINE
     Indication: Overdose
     Dosage: 0.006 MICROGRAM/GRAM
  12. TRIMEPRAZINE [Interacting]
     Active Substance: TRIMEPRAZINE
     Indication: Product used for unknown indication
     Dosage: 0.2 MICROGRAM PER GRAM
  13. MIRTAZAPINE [Interacting]
     Active Substance: MIRTAZAPINE
     Indication: Overdose
     Dosage: UNK
  14. DRONABINOL [Suspect]
     Active Substance: DRONABINOL
     Indication: Product used for unknown indication
     Dosage: UNK
  15. CANNABIS SATIVA FLOWERING TOP [Interacting]
     Active Substance: CANNABIS SATIVA FLOWERING TOP
     Indication: Product used for unknown indication
     Dosage: UNK
  16. REMERON [Suspect]
     Active Substance: MIRTAZAPINE
     Indication: Product used for unknown indication
     Dosage: UNK
  17. CLONAZEPAM [Suspect]
     Active Substance: CLONAZEPAM
     Indication: Overdose
     Dosage: UNK
  18. TRIMEPRAZINE [Suspect]
     Active Substance: TRIMEPRAZINE
     Indication: Product used for unknown indication
     Dosage: 0.2 MICROGRAM/GRAM
  19. ZOPICLONE [Suspect]
     Active Substance: ZOPICLONE
     Indication: Product used for unknown indication
     Dosage: UNK
  20. BUPRENORPHINE HYDROCHLORIDE [Suspect]
     Active Substance: BUPRENORPHINE HYDROCHLORIDE
     Indication: Overdose
     Dosage: 0.006 MICROGRAM/GRAM

REACTIONS (9)
  - Drug interaction [Fatal]
  - Toxicity to various agents [Fatal]
  - Accidental overdose [Fatal]
  - Brain oedema [Fatal]
  - Pulmonary oedema [Fatal]
  - Drug tolerance [Fatal]
  - Drug abuse [Fatal]
  - Foaming at mouth [Fatal]
  - Obstructive airways disorder [Fatal]
